FAERS Safety Report 24131776 (Version 1)
Quarter: 2024Q3

REPORT INFORMATION
  Report Type: Spontaneous
  Country: CN (occurrence: CN)
  Receive Date: 20240724
  Receipt Date: 20240724
  Transmission Date: 20241017
  Serious: Yes (Other)
  Sender: GLAND PHARMA
  Company Number: CN-GLANDPHARMA-CN-2024GLNLIT00517

PATIENT
  Age: 38 Year
  Sex: Male

DRUGS (3)
  1. VANCOMYCIN HYDROCHLORIDE [Suspect]
     Active Substance: VANCOMYCIN HYDROCHLORIDE
     Indication: Pneumonia
     Route: 065
  2. TEICOPLANIN [Suspect]
     Active Substance: TEICOPLANIN
     Indication: Pneumonia
     Route: 065
  3. BM TRIMETHAZIDINE HCL [Concomitant]
     Indication: Pneumonia
     Route: 065

REACTIONS (2)
  - Drug-induced liver injury [Not Recovered/Not Resolved]
  - Product use in unapproved indication [Unknown]
